FAERS Safety Report 17350745 (Version 1)
Quarter: 2020Q1

REPORT INFORMATION
  Report Type: Spontaneous
  Country: CZ (occurrence: CZ)
  Receive Date: 20200130
  Receipt Date: 20200130
  Transmission Date: 20200409
  Serious: Yes (Hospitalization)
  Sender: FDA-Public Use
  Company Number: CZ-AUROBINDO-AUR-APL-2019-031634

PATIENT
  Age: 74 Year
  Sex: Female

DRUGS (1)
  1. FUROSEMID [Suspect]
     Active Substance: FUROSEMIDE
     Indication: PRODUCT USED FOR UNKNOWN INDICATION
     Dosage: UNK
     Route: 065

REACTIONS (3)
  - Therapeutic response decreased [Recovering/Resolving]
  - Hypotension [Unknown]
  - Tachycardia paroxysmal [Unknown]
